FAERS Safety Report 8812725 (Version 2)
Quarter: 2012Q4

REPORT INFORMATION
  Report Type: Report from Study
  Country: ES (occurrence: ES)
  Receive Date: 20120927
  Receipt Date: 20121220
  Transmission Date: 20130627
  Serious: Yes (Hospitalization)
  Sender: FDA-Public Use
  Company Number: ES-ABBOTT-12P-144-0981999-00

PATIENT
  Age: 28 Year
  Sex: Male

DRUGS (13)
  1. HUMIRA [Suspect]
     Indication: CROHN^S DISEASE
     Route: 058
     Dates: start: 20091007, end: 20091007
  2. HUMIRA [Suspect]
     Route: 058
     Dates: end: 20120320
  3. HUMIRA [Suspect]
     Route: 058
     Dates: start: 20120402
  4. AZATHIOPRINE [Concomitant]
     Indication: CROHN^S DISEASE
     Dates: start: 2006
  5. CIPROFLOXACIN [Concomitant]
     Indication: ABDOMINAL INFECTION
     Dates: start: 20120320, end: 20120326
  6. IMIPENEM [Concomitant]
     Indication: ABDOMINAL INFECTION
     Dates: start: 20120327, end: 20120402
  7. IMIPENEM [Concomitant]
     Indication: ABDOMINAL ABSCESS
  8. OMEPRAZOLE [Concomitant]
     Indication: GASTRIC DISORDER
     Dates: start: 20120320, end: 20120402
  9. OMEPRAZOLE [Concomitant]
     Indication: PROPHYLAXIS
  10. ENOXAPARIN [Concomitant]
     Indication: PROPHYLAXIS
     Dates: start: 20120320, end: 20120402
  11. ENOXAPARIN [Concomitant]
     Indication: EMBOLISM
  12. METHYLPREDNISOLONE [Concomitant]
     Indication: CROHN^S DISEASE
  13. METRONIDAZOLE [Concomitant]
     Indication: ABDOMINAL INFECTION
     Dates: start: 20120320, end: 20120325

REACTIONS (2)
  - Abdominal abscess [Recovered/Resolved]
  - Psoas abscess [Recovered/Resolved]
